FAERS Safety Report 12231697 (Version 3)
Quarter: 2016Q4

REPORT INFORMATION
  Report Type: Spontaneous
  Country: US (occurrence: US)
  Receive Date: 20160401
  Receipt Date: 20161227
  Transmission Date: 20170207
  Serious: Yes (Other)
  Sender: FDA-Public Use
  Company Number: US-BAYER-2016-061875

PATIENT
  Age: 24 Year
  Sex: Female

DRUGS (6)
  1. MIRENA [Suspect]
     Active Substance: LEVONORGESTREL
     Indication: CONTRACEPTION
  2. ACYCLOVIR [ACICLOVIR] [Concomitant]
     Active Substance: ACYCLOVIR
  3. VALTREX [Concomitant]
     Active Substance: VALACYCLOVIR HYDROCHLORIDE
  4. SEPTRA DS [Concomitant]
     Active Substance: SULFAMETHOXAZOLE\TRIMETHOPRIM
  5. CETIRIZIN [Concomitant]
     Active Substance: CETIRIZINE HYDROCHLORIDE
  6. MIRENA [Suspect]
     Active Substance: LEVONORGESTREL
     Indication: CONTRACEPTION
     Dosage: 20 MCG/24HR, CONT
     Route: 015
     Dates: start: 20070423, end: 20100426

REACTIONS (5)
  - Pelvic inflammatory disease [None]
  - Benign intracranial hypertension [None]
  - Loss of consciousness [None]
  - Visual field defect [None]
  - Headache [None]

NARRATIVE: CASE EVENT DATE: 20080209
